FAERS Safety Report 9356898 (Version 2)
Quarter: 2013Q3

REPORT INFORMATION
  Report Type: Spontaneous
  Country: IT (occurrence: IT)
  Receive Date: 20130620
  Receipt Date: 20130729
  Transmission Date: 20140515
  Serious: Yes (Hospitalization)
  Sender: FDA-Public Use
  Company Number: IT-ROCHE-1237836

PATIENT
  Age: 62 Year
  Sex: Female
  Weight: 79 kg

DRUGS (3)
  1. XELODA [Suspect]
     Indication: BREAST CANCER
     Route: 048
     Dates: start: 20130219, end: 20130502
  2. TARGIN [Concomitant]
     Route: 048
     Dates: start: 20120104, end: 20130504
  3. TARGIN [Concomitant]
     Route: 048
     Dates: start: 20120104, end: 20130504

REACTIONS (4)
  - Abdominal pain [Recovered/Resolved]
  - Abdominal pain upper [Recovered/Resolved]
  - Diarrhoea [Recovered/Resolved]
  - Hypokalaemic syndrome [Recovered/Resolved]
